FAERS Safety Report 9036626 (Version 1)
Quarter: 2013Q1

REPORT INFORMATION
  Report Type: Spontaneous
  Country: US (occurrence: None)
  Receive Date: 20130117
  Receipt Date: 20130117
  Transmission Date: 20140127
  Serious: No
  Sender: FDA-Public Use
  Company Number: None

PATIENT
  Sex: 0

DRUGS (1)
  1. MELATONIN [Suspect]

REACTIONS (3)
  - Blood glucose decreased [None]
  - Loss of consciousness [None]
  - Road traffic accident [None]
